FAERS Safety Report 7361324-1 (Version None)
Quarter: 2011Q1

REPORT INFORMATION
  Report Type: 
  Country: None (occurrence: None)
  Receive Date: 20110318
  Receipt Date: 20110311
  Transmission Date: 20110831
  Serious: Yes (Hospitalization)
  Sender: FDA-Public Use
  Company Number: B0699818A

PATIENT
  Age: 86 Year
  Sex: Male

DRUGS (1)
  1. ROSIGLITAZONE MALEATE [Suspect]
     Route: 048
     Dates: start: 20040201, end: 20090401

REACTIONS (1)
  - CEREBROVASCULAR ACCIDENT [None]
